FAERS Safety Report 10253167 (Version 1)
Quarter: 2014Q2

REPORT INFORMATION
  Report Type: Spontaneous
  Country: GB (occurrence: GB)
  Receive Date: 20140623
  Receipt Date: 20140623
  Transmission Date: 20141212
  Serious: Yes (Other)
  Sender: FDA-Public Use
  Company Number: GB-GLAXOSMITHKLINE-B1006348A

PATIENT
  Age: 35 Year
  Sex: Female

DRUGS (5)
  1. ONDANSETRON [Suspect]
     Indication: ANAESTHESIA
     Route: 065
  2. CEFUROXIME [Suspect]
     Indication: ANAESTHESIA
     Route: 042
  3. PHENYLEPHRINE [Suspect]
     Indication: ANAESTHESIA
     Route: 042
  4. BUPIVACAINE [Suspect]
     Indication: ANAESTHESIA
     Route: 065
  5. DIAMORPHINE [Suspect]
     Indication: ANAESTHESIA
     Route: 065

REACTIONS (3)
  - Ventricular tachycardia [Recovered/Resolved]
  - Live birth [Unknown]
  - Exposure during pregnancy [Unknown]
